FAERS Safety Report 13669185 (Version 1)
Quarter: 2017Q2

REPORT INFORMATION
  Report Type: Spontaneous
  Country: FR (occurrence: FR)
  Receive Date: 20170620
  Receipt Date: 20170620
  Transmission Date: 20170830
  Serious: Yes (Death)
  Sender: FDA-Public Use
  Company Number: FR-PFIZER INC-2017264004

PATIENT
  Age: 70 Year
  Sex: Female

DRUGS (8)
  1. GEMCITABINE HYDROCHLORIDE. [Suspect]
     Active Substance: GEMCITABINE HYDROCHLORIDE
     Indication: TRANSITIONAL CELL CARCINOMA
     Dosage: 1590 MG, WEEKLY
     Route: 042
     Dates: start: 20170117, end: 20170124
  2. SIMVASTATIN. [Concomitant]
     Active Substance: SIMVASTATIN
  3. DOLIPRANE [Concomitant]
     Active Substance: ACETAMINOPHEN
  4. CARBOPLATINE HOSPIRA [Suspect]
     Active Substance: CARBOPLATIN
     Indication: TRANSITIONAL CELL CARCINOMA
     Dosage: 500 MG, SINGLE
     Route: 042
     Dates: start: 20170117, end: 20170117
  5. STAGID [Concomitant]
     Active Substance: METFORMIN PAMOATE
  6. DIFFU K [Concomitant]
     Active Substance: POTASSIUM CHLORIDE
  7. SPECIAFOLDINE [Concomitant]
     Active Substance: FOLIC ACID
  8. IRBESARTAN. [Concomitant]
     Active Substance: IRBESARTAN

REACTIONS (2)
  - Pancytopenia [Fatal]
  - Epistaxis [Recovered/Resolved]

NARRATIVE: CASE EVENT DATE: 20170124
